FAERS Safety Report 10450181 (Version 1)
Quarter: 2014Q3

REPORT INFORMATION
  Report Type: Spontaneous
  Country: US (occurrence: US)
  Receive Date: 20140912
  Receipt Date: 20140912
  Transmission Date: 20150326
  Serious: No
  Sender: FDA-Public Use
  Company Number: US-PFIZER INC-2014251828

PATIENT
  Sex: Female

DRUGS (2)
  1. BRISDELLE [Suspect]
     Active Substance: PAROXETINE MESYLATE
     Indication: DYSPHORIA
     Dosage: 7.5 MG, 1X/DAY, (AT NIGHT FOR TWO WEEKS )
     Route: 048
     Dates: start: 201408
  2. ZOLOFT [Suspect]
     Active Substance: SERTRALINE HYDROCHLORIDE
     Dosage: 50 MG, 1X/DAY,(AT NIGHT)
     Route: 048

REACTIONS (2)
  - Abnormal dreams [Not Recovered/Not Resolved]
  - Hyperhidrosis [Not Recovered/Not Resolved]

NARRATIVE: CASE EVENT DATE: 201408
